FAERS Safety Report 15593708 (Version 1)
Quarter: 2018Q4

REPORT INFORMATION
  Report Type: Spontaneous
  Country: US (occurrence: US)
  Receive Date: 20181102
  Receipt Date: 20181102
  Transmission Date: 20190205
  Serious: Yes (Hospitalization, Other)
  Sender: FDA-Public Use
  Company Number: None

PATIENT
  Age: 68 Year
  Sex: Male
  Weight: 112.04 kg

DRUGS (2)
  1. AMLODIPINE [Suspect]
     Active Substance: AMLODIPINE BESYLATE
     Indication: HYPERTENSION
     Route: 048
     Dates: start: 20120427, end: 20180919
  2. MINOXIDIL. [Suspect]
     Active Substance: MINOXIDIL
     Indication: HYPERTENSION
     Route: 048
     Dates: start: 20180829, end: 20180919

REACTIONS (5)
  - Weight increased [None]
  - Dyspnoea [None]
  - Chest pain [None]
  - Oedema peripheral [None]
  - Fluid overload [None]

NARRATIVE: CASE EVENT DATE: 20180919
